FAERS Safety Report 7305819-5 (Version None)
Quarter: 2011Q1

REPORT INFORMATION
  Report Type: 
  Country: None (occurrence: None)
  Receive Date: 20110222
  Receipt Date: 20110215
  Transmission Date: 20110831
  Serious: Yes (Death, Hospitalization)
  Sender: FDA-Public Use
  Company Number: CL-ROCHE-755791

PATIENT
  Sex: Male
  Weight: 60 kg

DRUGS (3)
  1. LOPERAMIDE [Concomitant]
  2. DOMPERIDONE [Concomitant]
  3. XELODA [Suspect]
     Indication: RECTAL CANCER
     Dosage: 1500 MG IN THE MORNING AND 1500 MG AT NIGHT.
     Route: 048
     Dates: start: 20110112, end: 20110123

REACTIONS (6)
  - NAUSEA [None]
  - DISEASE PROGRESSION [None]
  - SUPERFICIAL VEIN PROMINENCE [None]
  - DIARRHOEA [None]
  - VOMITING [None]
  - GASTROINTESTINAL INFECTION [None]
